FAERS Safety Report 15001385 (Version 1)
Quarter: 2018Q2

REPORT INFORMATION
  Report Type: Spontaneous
  Country: US (occurrence: US)
  Receive Date: 20180612
  Receipt Date: 20180612
  Transmission Date: 20180711
  Serious: No
  Sender: FDA-Public Use
  Company Number: US-BAYER-2018-111564

PATIENT
  Age: 62 Year
  Sex: Female
  Weight: 72.97 kg

DRUGS (3)
  1. MIRALAX [Suspect]
     Active Substance: POLYETHYLENE GLYCOL 3350
     Indication: COLONOSCOPY
     Dosage: 238 G, Q4HR
     Route: 048
  2. MIRALAX [Suspect]
     Active Substance: POLYETHYLENE GLYCOL 3350
     Indication: COLONOSCOPY
     Dosage: 119 G, UNK
     Route: 048
  3. DULCOLAX PICOSULFAT [Concomitant]
     Active Substance: SODIUM PICOSULFATE
     Indication: COLONOSCOPY
     Dosage: 4 DF, UNK
     Route: 048
     Dates: start: 20180612

REACTIONS (2)
  - Product use in unapproved indication [Unknown]
  - Off label use [Unknown]

NARRATIVE: CASE EVENT DATE: 201804
